FAERS Safety Report 13298870 (Version 1)
Quarter: 2017Q1

REPORT INFORMATION
  Report Type: Spontaneous
  Country: FR (occurrence: FR)
  Receive Date: 20170306
  Receipt Date: 20170306
  Transmission Date: 20170428
  Serious: Yes (Life-Threatening, Other)
  Sender: FDA-Public Use
  Company Number: FR-BRISTOL-MYERS SQUIBB COMPANY-BMS-2017-018943

PATIENT
  Age: 47 Year
  Sex: Female

DRUGS (1)
  1. ATAZANAVIR SULFATE [Suspect]
     Active Substance: ATAZANAVIR SULFATE
     Indication: PRODUCT USED FOR UNKNOWN INDICATION
     Dosage: UNK
     Route: 065

REACTIONS (8)
  - Pyelonephritis [Unknown]
  - Chronic kidney disease [Unknown]
  - Nephrectomy [Unknown]
  - Nephrolithiasis [Unknown]
  - Bacterial infection [Unknown]
  - Haemodialysis [Unknown]
  - Renal failure [Unknown]
  - Ureteral stent insertion [Unknown]
